FAERS Safety Report 15463549 (Version 1)
Quarter: 2018Q4

REPORT INFORMATION
  Report Type: Spontaneous
  Country: US (occurrence: US)
  Receive Date: 20181001
  Receipt Date: 20181001
  Transmission Date: 20190204
  Serious: Yes (Death)
  Sender: FDA-Public Use
  Company Number: None

PATIENT
  Age: 58 Year
  Sex: Female

DRUGS (10)
  1. GABAPENTIN. [Concomitant]
     Active Substance: GABAPENTIN
  2. VENAFAXINE [Concomitant]
  3. FUROSEMIDE. [Concomitant]
     Active Substance: FUROSEMIDE
  4. SPIRONOLACT [Concomitant]
     Active Substance: SPIRONOLACTONE
  5. METROPROL [Concomitant]
  6. VENTOLIN [Concomitant]
     Active Substance: ALBUTEROL SULFATE
  7. GLIPIZIDE. [Concomitant]
     Active Substance: GLIPIZIDE
  8. ATORVASTIN [Concomitant]
     Active Substance: ATORVASTATIN
  9. METFORMIN [Concomitant]
     Active Substance: METFORMIN HYDROCHLORIDE
  10. RYDAPT [Suspect]
     Active Substance: MIDOSTAURIN
     Dosage: ?          OTHER FREQUENCY:BID ON DAYS 8 -21;?
     Route: 048
     Dates: start: 20180606

REACTIONS (2)
  - Disease progression [None]
  - Sepsis [None]

NARRATIVE: CASE EVENT DATE: 20180926
